FAERS Safety Report 25215522 (Version 1)
Quarter: 2025Q2

REPORT INFORMATION
  Report Type: Spontaneous
  Country: US (occurrence: US)
  Receive Date: 20250418
  Receipt Date: 20250418
  Transmission Date: 20250716
  Serious: No
  Sender: Phathom Pharmaceuticals
  Company Number: US-PHATHOM PHARMACEUTICALS INC.-2025PHT00561

PATIENT
  Age: 44 Year
  Sex: Female
  Weight: 86 kg

DRUGS (3)
  1. VOQUEZNA [Suspect]
     Active Substance: VONOPRAZAN FUMARATE
     Indication: Gastrooesophageal reflux disease
     Dosage: 10 MG, 1X/DAY
     Route: 048
     Dates: start: 20250111, end: 20250312
  2. OZEMPIC [Concomitant]
     Active Substance: SEMAGLUTIDE
  3. GLIPIZIDE [Concomitant]
     Active Substance: GLIPIZIDE

REACTIONS (2)
  - Blood glucose abnormal [Unknown]
  - Drug ineffective [Recovered/Resolved]

NARRATIVE: CASE EVENT DATE: 20250101
